FAERS Safety Report 13796267 (Version 1)
Quarter: 2017Q3

REPORT INFORMATION
  Report Type: Spontaneous
  Country: FR (occurrence: FR)
  Receive Date: 20170726
  Receipt Date: 20170726
  Transmission Date: 20171127
  Serious: Yes (Other)
  Sender: FDA-Public Use
  Company Number: FR-BAUSCH-BL-2017-021875

PATIENT
  Age: 30 Year
  Sex: Female

DRUGS (2)
  1. OFLOXACIN. [Suspect]
     Active Substance: OFLOXACIN
     Indication: INFECTION
     Route: 048
     Dates: start: 20170617, end: 20170625
  2. FLAGYL [Suspect]
     Active Substance: METRONIDAZOLE\METRONIDAZOLE HYDROCHLORIDE
     Indication: INFECTION
     Route: 048
     Dates: start: 20170617, end: 20170625

REACTIONS (7)
  - Anxiety [Recovered/Resolved]
  - Tachycardia [Recovered/Resolved]
  - Suicidal ideation [Recovered/Resolved]
  - Photophobia [Recovered/Resolved]
  - Vertigo [Recovered/Resolved]
  - Confusional state [Recovered/Resolved]
  - Hypoaesthesia [Recovered/Resolved]

NARRATIVE: CASE EVENT DATE: 201706
